FAERS Safety Report 7526453-8 (Version None)
Quarter: 2011Q2

REPORT INFORMATION
  Report Type: 
  Country: None (occurrence: None)
  Receive Date: 20110606
  Receipt Date: 20110526
  Transmission Date: 20111010
  Serious: Yes (Life-Threatening)
  Sender: FDA-Public Use
  Company Number: JP-CELGENEUS-087-50794-11052285

PATIENT
  Age: 73 Year
  Sex: Female

DRUGS (5)
  1. PURSENNID [Concomitant]
     Route: 048
  2. GLAKAY [Concomitant]
     Dosage: 4 DF
     Route: 048
  3. MUCOSTA [Concomitant]
     Dosage: 4 DF
     Route: 048
  4. VIDAZA [Suspect]
     Dosage: 75 MILLIGRAM/SQ. METER
     Route: 051
     Dates: start: 20110510, end: 20110515
  5. MAGMITT [Concomitant]
     Route: 048

REACTIONS (6)
  - HYPOTENSION [None]
  - GASTRIC MUCOSAL LESION [None]
  - SEPTIC SHOCK [None]
  - ATRIAL FIBRILLATION [None]
  - HYPOXIA [None]
  - PYREXIA [None]
